FAERS Safety Report 20418923 (Version 2)
Quarter: 2022Q1

REPORT INFORMATION
  Report Type: Spontaneous
  Country: FR (occurrence: FR)
  Receive Date: 20220202
  Receipt Date: 20220331
  Transmission Date: 20220423
  Serious: Yes (Hospitalization)
  Sender: FDA-Public Use
  Company Number: FR-SUN PHARMACEUTICAL INDUSTRIES LTD-2022RR-325578

PATIENT
  Age: 15 Year
  Sex: Male
  Weight: 53.3 kg

DRUGS (2)
  1. SERTRALINE [Suspect]
     Active Substance: SERTRALINE HYDROCHLORIDE
     Indication: Obsessive-compulsive disorder
     Dosage: 50 MILLIGRAM, DAILY
     Route: 048
     Dates: start: 20211225, end: 20220110
  2. SERTRALINE [Suspect]
     Active Substance: SERTRALINE HYDROCHLORIDE
     Dosage: 25 MILLIGRAM, DAILY
     Route: 048
     Dates: start: 20211216, end: 20211224

REACTIONS (4)
  - Myoclonus [Recovered/Resolved]
  - Disease recurrence [Recovered/Resolved]
  - Generalised tonic-clonic seizure [Recovered/Resolved]
  - Juvenile myoclonic epilepsy [Not Recovered/Not Resolved]

NARRATIVE: CASE EVENT DATE: 20220110
